FAERS Safety Report 4593572-8 (Version None)
Quarter: 2005Q1

REPORT INFORMATION
  Report Type: 
  Country: None (occurrence: None)
  Receive Date: 20050224
  Receipt Date: 20040811
  Transmission Date: 20050727
  Serious: No
  Sender: FDA-Public Use
  Company Number: US-BRISTOL-MYERS SQUIBB COMPANY-12699120

PATIENT
  Age: 54 Year
  Sex: Female

DRUGS (5)
  1. EXCEDRIN (MIGRAINE) [Suspect]
     Indication: PROPHYLAXIS
     Dosage: 2 DOASAGE FORM TAKEN
     Route: 048
     Dates: start: 20040610
  2. ALEVE [Suspect]
     Indication: HAND FRACTURE
     Route: 048
     Dates: start: 20040604
  3. ALEVE [Suspect]
     Indication: JOINT SPRAIN
     Route: 048
     Dates: start: 20040604
  4. ALCOHOL [Suspect]
     Dosage: 2-3 MARGARITAS
     Route: 048
     Dates: start: 20040610
  5. SYNTHROID [Concomitant]
     Route: 048

REACTIONS (4)
  - DYSARTHRIA [None]
  - GAIT DISTURBANCE [None]
  - MYDRIASIS [None]
  - SOMNOLENCE [None]
